FAERS Safety Report 10885682 (Version 1)
Quarter: 2015Q1

REPORT INFORMATION
  Report Type: Spontaneous
  Country: US (occurrence: None)
  Receive Date: 20150227
  Receipt Date: 20150227
  Transmission Date: 20150721
  Serious: Yes (Other)
  Sender: FDA-Public Use
  Company Number: 20150095

PATIENT
  Age: 4 Year
  Sex: Female

DRUGS (1)
  1. CYCLOSPORINE INJECTION, USP (866-10) 50 MG/ML [Suspect]
     Active Substance: CYCLOSPORINE
     Indication: DERMATITIS ATOPIC

REACTIONS (1)
  - Epidermodysplasia verruciformis [None]
